FAERS Safety Report 13749515 (Version 3)
Quarter: 2017Q3

REPORT INFORMATION
  Report Type: Spontaneous
  Country: US (occurrence: US)
  Receive Date: 20170713
  Receipt Date: 20170801
  Transmission Date: 20171127
  Serious: Yes (Hospitalization, Other)
  Sender: FDA-Public Use
  Company Number: US-AMGEN-USASP2017104683

PATIENT
  Age: 59 Year
  Sex: Female

DRUGS (2)
  1. NPLATE [Suspect]
     Active Substance: ROMIPLOSTIM
     Indication: IMMUNE THROMBOCYTOPENIC PURPURA
     Dosage: 250 MUG, X 2
     Route: 058
     Dates: start: 20170423
  2. NPLATE [Suspect]
     Active Substance: ROMIPLOSTIM
     Dosage: 210 MUG, UNK
     Route: 058
     Dates: start: 20170707

REACTIONS (5)
  - Speech disorder [Recovered/Resolved]
  - Incoherent [Recovered/Resolved]
  - Unresponsive to stimuli [Recovered/Resolved]
  - Mental status changes [Unknown]
  - Platelet count abnormal [Recovered/Resolved]

NARRATIVE: CASE EVENT DATE: 20170707
